FAERS Safety Report 13075708 (Version 1)
Quarter: 2016Q4

REPORT INFORMATION
  Report Type: Spontaneous
  Country: US (occurrence: US)
  Receive Date: 20161230
  Receipt Date: 20161230
  Transmission Date: 20170207
  Serious: Yes (Hospitalization, Other)
  Sender: FDA-Public Use
  Company Number: US-SA-2016SA235967

PATIENT
  Age: 74 Year
  Sex: Male

DRUGS (24)
  1. VENLAFAXINE [Concomitant]
     Active Substance: VENLAFAXINE HYDROCHLORIDE
     Route: 065
  2. ZIV-AFLIBERCEPT [Suspect]
     Active Substance: ZIV-AFLIBERCEPT
     Indication: CARCINOID TUMOUR
     Route: 042
  3. FENOFIBRATE. [Concomitant]
     Active Substance: FENOFIBRATE
     Route: 065
  4. FOLIC ACID. [Concomitant]
     Active Substance: FOLIC ACID
     Route: 065
  5. MOMETASONE [Concomitant]
     Active Substance: MOMETASONE
     Route: 065
  6. NIFEDIPINE. [Concomitant]
     Active Substance: NIFEDIPINE
     Route: 061
  7. CHOLESTYRAMINE. [Concomitant]
     Active Substance: CHOLESTYRAMINE
     Route: 065
  8. OCTREOTIDE. [Concomitant]
     Active Substance: OCTREOTIDE
     Dosage: MICROSPHERES
     Route: 065
  9. OPIUM. [Concomitant]
     Active Substance: OPIUM
     Route: 065
  10. RANITIDINE. [Concomitant]
     Active Substance: RANITIDINE
     Route: 065
  11. AMLODIPINE [Concomitant]
     Active Substance: AMLODIPINE BESYLATE
     Route: 065
  12. VITAMIN D [Concomitant]
     Active Substance: CHOLECALCIFEROL
     Route: 065
  13. CYANOCOBALAMIN. [Concomitant]
     Active Substance: CYANOCOBALAMIN
     Route: 065
  14. HYDROCHLOROTHIAZIDE. [Concomitant]
     Active Substance: HYDROCHLOROTHIAZIDE
     Route: 065
  15. DIPHENOXYLATE/ATROPINE [Concomitant]
     Route: 065
  16. LISINOPRIL. [Concomitant]
     Active Substance: LISINOPRIL
     Route: 065
  17. PANCRELIPASE. [Concomitant]
     Active Substance: PANCRELIPASE
     Route: 065
  18. FLUOXETINE [Concomitant]
     Active Substance: FLUOXETINE HYDROCHLORIDE
     Route: 065
  19. CALCIUM [Concomitant]
     Active Substance: CALCIUM
     Route: 048
  20. MAGNESIUM OXIDE. [Concomitant]
     Active Substance: MAGNESIUM OXIDE
     Route: 065
  21. LIDOCAINE. [Concomitant]
     Active Substance: LIDOCAINE
     Route: 065
  22. PANTHENOL/RETINOL/THIAMINE HYDROCHLORIDE/ASCORBIC ACID/ERGOCALCIFEROL/FOLIC ACID/RIBOFLAVIN/NICOTINA [Concomitant]
     Route: 065
  23. FINASTERIDE. [Concomitant]
     Active Substance: FINASTERIDE
     Route: 065
  24. SUMATRIPTAN. [Concomitant]
     Active Substance: SUMATRIPTAN
     Route: 065

REACTIONS (10)
  - Musculoskeletal chest pain [Unknown]
  - Cardiomegaly [Unknown]
  - Bundle branch block right [Unknown]
  - Malaise [Unknown]
  - Pain in extremity [Unknown]
  - Fatigue [Unknown]
  - Confusional state [Unknown]
  - Sinus tachycardia [Unknown]
  - Dyspnoea [Unknown]
  - Lethargy [Unknown]

NARRATIVE: CASE EVENT DATE: 20161215
